FAERS Safety Report 23024159 (Version 2)
Quarter: 2023Q4

REPORT INFORMATION
  Report Type: Spontaneous
  Country: JP (occurrence: JP)
  Receive Date: 20231004
  Receipt Date: 20231009
  Transmission Date: 20240110
  Serious: Yes (Death, Other)
  Sender: FDA-Public Use
  Company Number: JP-BAXTER-2023BAX032021

PATIENT
  Age: 100 Year
  Sex: Female

DRUGS (2)
  1. CALCIUM CHLORIDE\DEXTROSE MONOHYDRATE\HYDROCHLORIC ACID\MAGNESIUM CHLO [Suspect]
     Active Substance: CALCIUM CHLORIDE\DEXTROSE MONOHYDRATE\HYDROCHLORIC ACID\MAGNESIUM CHLORIDE\SODIUM BICARBONATE\SODIUM
     Indication: Peritoneal dialysis
     Dosage: 4.25%
     Route: 033
  2. EXTRANEAL [Suspect]
     Active Substance: CALCIUM CHLORIDE\ICODEXTRIN\MAGNESIUM CHLORIDE\SODIUM CHLORIDE\SODIUM LACTATE
     Indication: Peritoneal dialysis
     Dosage: UNK
     Route: 033

REACTIONS (2)
  - Death [Fatal]
  - Blood pressure decreased [Unknown]
